FAERS Safety Report 10221045 (Version 1)
Quarter: 2014Q2

REPORT INFORMATION
  Report Type: Other
  Country: US (occurrence: US)
  Receive Date: 20140606
  Receipt Date: 20140606
  Transmission Date: 20141212
  Serious: Yes (Other)
  Sender: FDA-Public Use
  Company Number: US-MUNDIPHARMA DS AND PHARMACOVIGILANCE-USA-2014-0114450

PATIENT
  Age: 62 Year
  Sex: Male

DRUGS (6)
  1. OXYCODONE HCL IMMEDIATE RELEASE (91-490) [Suspect]
     Indication: PAIN
     Dosage: 5 MG Q 4 HOURS PRN
     Route: 048
  2. OXYCODONE HCL IMMEDIATE RELEASE (91-490) [Suspect]
     Dosage: 10 MG Q 4 HOURS PRN
     Route: 048
  3. TRAMADOL [Suspect]
     Indication: PAIN
     Dosage: 50 MG, Q6H
     Route: 048
  4. TRAMADOL [Suspect]
     Dosage: 100 MG, Q6H
     Route: 048
  5. BUPROPION [Suspect]
     Indication: ANTIDEPRESSANT THERAPY
     Dosage: 150 MG, BID
     Route: 048
  6. TRAZODONE [Suspect]
     Indication: INSOMNIA
     Dosage: 25 MG, UNK
     Route: 048

REACTIONS (12)
  - Serotonin syndrome [Recovered/Resolved]
  - Urinary incontinence [Recovered/Resolved]
  - Tachypnoea [Recovered/Resolved]
  - Pressure of speech [Recovered/Resolved]
  - Hallucination, visual [Recovered/Resolved]
  - Disorientation [Recovered/Resolved]
  - Insomnia [Recovered/Resolved]
  - Pain [Recovered/Resolved]
  - Anxiety [Recovered/Resolved]
  - Dysarthria [Recovered/Resolved]
  - Tremor [Recovered/Resolved]
  - Thinking abnormal [Recovered/Resolved]
